FAERS Safety Report 8521677-5 (Version None)
Quarter: 2012Q3

REPORT INFORMATION
  Report Type: 
  Country: None (occurrence: None)
  Receive Date: 20120719
  Receipt Date: 20120718
  Transmission Date: 20120928
  Serious: Yes (Death, Other)
  Sender: FDA-Public Use
  Company Number: PHHY2012NZ061438

PATIENT
  Sex: Male

DRUGS (1)
  1. CLOZARIL [Suspect]
     Dosage: UNK UKN, UNK
     Dates: start: 20090327

REACTIONS (7)
  - CONSCIOUSNESS FLUCTUATING [None]
  - MENTAL IMPAIRMENT [None]
  - ARRHYTHMIA [None]
  - PULSE PRESSURE DECREASED [None]
  - DEATH [None]
  - DEPRESSED LEVEL OF CONSCIOUSNESS [None]
  - HYPOPHAGIA [None]
